FAERS Safety Report 16744496 (Version 1)
Quarter: 2019Q3

REPORT INFORMATION
  Report Type: Spontaneous
  Country: MX (occurrence: MX)
  Receive Date: 20190827
  Receipt Date: 20190827
  Transmission Date: 20191005
  Serious: Yes (Other)
  Sender: FDA-Public Use
  Company Number: MX-PFIZER INC-2019361933

PATIENT
  Age: 71 Year
  Sex: Female
  Weight: 72 kg

DRUGS (2)
  1. DIGOXIN. [Concomitant]
     Active Substance: DIGOXIN
     Indication: ATRIAL FIBRILLATION
     Dosage: 1 DF, 1X/DAY (QD)
     Route: 048
     Dates: start: 2009
  2. CORDARONE [Suspect]
     Active Substance: AMIODARONE HYDROCHLORIDE
     Indication: ARRHYTHMIA
     Dosage: 1 DF, 1X/DAY (QD)
     Route: 048
     Dates: start: 2009

REACTIONS (4)
  - Pulmonary congestion [Not Recovered/Not Resolved]
  - Cardiac failure [Not Recovered/Not Resolved]
  - Infarction [Recovered/Resolved]
  - Cough [Not Recovered/Not Resolved]

NARRATIVE: CASE EVENT DATE: 201905
